FAERS Safety Report 8294287-5 (Version None)
Quarter: 2012Q2

REPORT INFORMATION
  Report Type: 
  Country: None (occurrence: None)
  Receive Date: 20120416
  Receipt Date: 20120330
  Transmission Date: 20120825
  Serious: Yes (Other)
  Sender: FDA-Public Use
  Company Number: FK201201008

PATIENT
  Age: 35 Year
  Sex: Female

DRUGS (1)
  1. LIDOCAINE HCL [Suspect]
     Indication: PAIN MANAGEMENT
     Dosage: 2 ML, INTRATHECAL
     Route: 037

REACTIONS (3)
  - BACK PAIN [None]
  - SINUS TACHYCARDIA [None]
  - ANAPHYLACTIC REACTION [None]
